FAERS Safety Report 9901927 (Version 1)
Quarter: 2014Q1

REPORT INFORMATION
  Report Type: Spontaneous
  Country: SE (occurrence: SE)
  Receive Date: 20140217
  Receipt Date: 20140217
  Transmission Date: 20141002
  Serious: Yes (Other)
  Sender: FDA-Public Use
  Company Number: SE-GLAXOSMITHKLINE-B0969906A

PATIENT
  Sex: Male

DRUGS (3)
  1. LAMICTAL [Suspect]
     Indication: EPILEPSY
     Dosage: 200MG PER DAY
     Route: 065
     Dates: start: 201310
  2. LEVAXIN [Concomitant]
  3. BETABLOCKER [Concomitant]

REACTIONS (2)
  - Angina pectoris [Unknown]
  - Fatigue [Unknown]
